FAERS Safety Report 7069714-1 (Version None)
Quarter: 2010Q4

REPORT INFORMATION
  Report Type: 
  Country: None (occurrence: None)
  Receive Date: 20101028
  Receipt Date: 20100518
  Transmission Date: 20110411
  Serious: No
  Sender: FDA-Public Use
  Company Number: US-WYE-H15329010

PATIENT
  Sex: Female
  Weight: 58.57 kg

DRUGS (5)
  1. EFFEXOR [Suspect]
     Indication: BIPOLAR I DISORDER
     Route: 048
  2. KLONOPIN [Concomitant]
  3. LIPITOR [Concomitant]
  4. ABILIFY [Concomitant]
  5. SEROQUEL [Concomitant]

REACTIONS (1)
  - DYSPHONIA [None]
